FAERS Safety Report 10501045 (Version 1)
Quarter: 2014Q4

REPORT INFORMATION
  Report Type: Spontaneous
  Country: US (occurrence: None)
  Receive Date: 20141006
  Receipt Date: 20141006
  Transmission Date: 20150528
  Serious: Yes (Hospitalization)
  Sender: FDA-Public Use
  Company Number: None

PATIENT
  Age: 56 Year
  Sex: Male
  Weight: 116.4 kg

DRUGS (2)
  1. SILDENAFIL 50MG (SILDENAFIL) UNKNOWN, 50MG [Suspect]
     Active Substance: SILDENAFIL
     Indication: ERECTILE DYSFUNCTION
     Route: 048
     Dates: start: 20140814, end: 20140922
  2. ISOSORBIDE MONONITRATE. [Suspect]
     Active Substance: ISOSORBIDE MONONITRATE
     Indication: HYPERTENSION
     Route: 048
     Dates: start: 20140814, end: 20140922

REACTIONS (3)
  - Dizziness [None]
  - Treatment noncompliance [None]
  - Blood pressure [None]

NARRATIVE: CASE EVENT DATE: 20140922
